FAERS Safety Report 9233555 (Version 1)
Quarter: 2013Q2

REPORT INFORMATION
  Report Type: Spontaneous
  Country: US (occurrence: US)
  Receive Date: 20130416
  Receipt Date: 20130416
  Transmission Date: 20140414
  Serious: Yes (Other)
  Sender: FDA-Public Use
  Company Number: US-SANOFI-AVENTIS-2013SA030040

PATIENT
  Age: 57 Year
  Sex: Female
  Weight: 113 kg

DRUGS (10)
  1. AUBAGIO [Suspect]
     Indication: MULTIPLE SCLEROSIS
     Route: 048
     Dates: start: 20121123, end: 20121130
  2. AUBAGIO [Suspect]
     Indication: MULTIPLE SCLEROSIS
     Route: 048
     Dates: start: 20130208
  3. LORTAB [Concomitant]
     Dosage: 7.5 MG-500 MG TAKE I TABLET BY ORAL ROUTE EVERY 4- 6 HOURS AS NEEDED FOR JOINT PAI
  4. CLONAZEPAM [Concomitant]
  5. HYDROXYZINE [Concomitant]
  6. PROTONEX [Concomitant]
  7. OLOPATADINE HYDROCHLORIDE [Concomitant]
     Dosage: 0.2 % ONE DROP IN EACH EYE EVERY MORNING
  8. CYCLOBENZAPRINE [Concomitant]
     Dates: start: 2010
  9. AMBIEN [Concomitant]
     Route: 048
  10. OLOPATADINE HYDROCHLORIDE [Concomitant]

REACTIONS (3)
  - Gastrointestinal ulcer perforation [Recovered/Resolved]
  - Abdominal pain [Recovered/Resolved]
  - Nephrolithiasis [Unknown]
